FAERS Safety Report 6964404-5 (Version None)
Quarter: 2010Q3

REPORT INFORMATION
  Report Type: 
  Country: None (occurrence: None)
  Receive Date: 20100903
  Receipt Date: 20100824
  Transmission Date: 20110219
  Serious: Yes (Other)
  Sender: FDA-Public Use
  Company Number: BR-PFIZER INC-2010106485

PATIENT
  Age: 19 Year
  Sex: Female
  Weight: 56 kg

DRUGS (1)
  1. DEPO-PROVERA [Suspect]
     Indication: CONTRACEPTION
     Dosage: 50 MG, MONTHLY
     Route: 030
     Dates: start: 20100823

REACTIONS (7)
  - DIZZINESS [None]
  - DRY MOUTH [None]
  - HYPOAESTHESIA [None]
  - INCORRECT DOSE ADMINISTERED [None]
  - MALAISE [None]
  - VISION BLURRED [None]
  - VISUAL IMPAIRMENT [None]
